FAERS Safety Report 8034271-X (Version None)
Quarter: 2012Q1

REPORT INFORMATION
  Report Type: 
  Country: None (occurrence: None)
  Receive Date: 20120110
  Receipt Date: 20120105
  Transmission Date: 20120608
  Serious: Yes (Other)
  Sender: FDA-Public Use
  Company Number: PHEH2012US000679

PATIENT
  Sex: Female

DRUGS (1)
  1. TEKTURNA [Suspect]
     Indication: BLOOD PRESSURE

REACTIONS (2)
  - TYPE 2 DIABETES MELLITUS [None]
  - BLOOD PRESSURE INCREASED [None]
